FAERS Safety Report 23028267 (Version 1)
Quarter: 2023Q4

REPORT INFORMATION
  Report Type: Spontaneous
  Country: US (occurrence: US)
  Receive Date: 20231004
  Receipt Date: 20231004
  Transmission Date: 20240109
  Serious: No
  Sender: FDA-Public Use
  Company Number: US-MYLANLABS-2023M1102854

PATIENT
  Sex: Female
  Weight: 70.6 kg

DRUGS (1)
  1. NORVASC [Suspect]
     Active Substance: AMLODIPINE BESYLATE
     Indication: Product used for unknown indication
     Dosage: 5 MILLIGRAM, BID (TWO TIMES A DAY)
     Route: 048

REACTIONS (2)
  - Peripheral swelling [Unknown]
  - Product dose omission issue [Unknown]
